FAERS Safety Report 9571193 (Version 4)
Quarter: 2013Q4

REPORT INFORMATION
  Report Type: Report from Study
  Country: CA (occurrence: CA)
  Receive Date: 20131001
  Receipt Date: 20131119
  Transmission Date: 20140711
  Serious: Yes (Hospitalization, Other)
  Sender: FDA-Public Use
  Company Number: PHHY2013CA109001

PATIENT
  Age: 62 Year
  Sex: Male

DRUGS (30)
  1. CLOZARIL [Suspect]
     Indication: BIPOLAR DISORDER
     Dosage: 25 MG, UNK
     Route: 048
     Dates: start: 20130912
  2. CLOZARIL [Suspect]
     Dosage: 50 MG, UNK
     Route: 048
     Dates: start: 20130914
  3. CLOZARIL [Suspect]
     Dosage: 75 MG, UNK
     Route: 048
     Dates: start: 20130916
  4. CLOZARIL [Suspect]
     Dosage: 100 MG, UNK
     Route: 048
     Dates: start: 20130919
  5. CLOZARIL [Suspect]
     Dosage: 50 MG, UNK
     Route: 048
     Dates: start: 20130925, end: 20130927
  6. CLOZARIL [Suspect]
     Dosage: 125 MG, QHS
     Dates: start: 20131101
  7. CLOZARIL [Suspect]
     Dosage: 125 MG, QHS
     Dates: start: 20131102
  8. CLOZARIL [Suspect]
     Dosage: 125 MG, QHS
     Dates: end: 20131103
  9. LITHIUM [Concomitant]
     Indication: BIPOLAR DISORDER
     Dosage: 300 MG, TID
     Dates: start: 20130831, end: 20130917
  10. LITHIUM [Concomitant]
     Dosage: 600 MG, QHS
     Dates: start: 20130917, end: 20130918
  11. LITHIUM [Concomitant]
     Dosage: 300 MG, QHS
     Dates: start: 20130919, end: 20130924
  12. SYNTHROID [Concomitant]
     Indication: BIPOLAR DISORDER
     Dosage: 112 MG, QD
     Route: 048
  13. PALIPERIDONE [Concomitant]
     Indication: BIPOLAR DISORDER
     Dosage: 6 MG, TID
  14. SEROQUEL [Concomitant]
     Indication: BIPOLAR DISORDER
     Dosage: 300 MG, QHS
  15. WELLBUTRIN [Concomitant]
     Indication: BIPOLAR DISORDER
     Dosage: 150 MG, QD
  16. BENZTROPINE [Concomitant]
     Dosage: 1 MG, BID
     Dates: start: 20130925, end: 20130927
  17. HYDROCHLOORTHIAZIDE [Concomitant]
     Dosage: 25 MG, UNK
     Dates: start: 20130926
  18. LORAZEPAM [Concomitant]
     Dosage: 1 DF, QH
     Dates: start: 20130927
  19. DALTEPARIN [Concomitant]
     Dosage: 5000 IU, UNK
     Dates: start: 20130927, end: 20131031
  20. ACETYLSALICYLIC ACID ENTERIC COATED [Concomitant]
     Dosage: 81 MG, UNK
     Dates: start: 20131003, end: 20131020
  21. TAZOCIN [Concomitant]
     Dosage: 1 DF, Q6H
     Route: 042
     Dates: start: 20130927, end: 20130930
  22. PENICILIN G [Concomitant]
     Dosage: 1 DF, Q4H
     Dates: start: 20130930, end: 20131030
  23. AMOXICILLIN [Concomitant]
     Dosage: 500 MG, BID
     Dates: start: 20131003, end: 20131006
  24. SODIUM BICARBONATE [Concomitant]
     Dosage: 475 MG, UNK
     Dates: start: 20131008
  25. CALCIUM GLUCONATE [Concomitant]
     Dosage: 1 DF, UNK
     Dates: start: 20130929
  26. PANTOPRAZOLE [Concomitant]
     Dosage: 40 MG, QD
     Route: 042
     Dates: start: 20130929, end: 20131003
  27. METOCLOPRAMIDE [Concomitant]
     Dosage: 1 DF, Q6H
     Route: 042
     Dates: start: 20130929, end: 20131006
  28. POTASSIUM CHLORIDE [Concomitant]
     Dosage: UNK
     Dates: start: 20130929
  29. POTASSIUM CHLORIDE [Concomitant]
     Dosage: UNK
     Dates: start: 20131001
  30. INTERLEUKINS [Concomitant]
     Dosage: 1400 IU, Q5W
     Dates: start: 20131104

REACTIONS (28)
  - Diabetes insipidus [Recovering/Resolving]
  - Fall [Unknown]
  - Haemorrhage intracranial [Recovering/Resolving]
  - Renal failure [Recovering/Resolving]
  - Dehydration [Unknown]
  - Platelet count decreased [Recovered/Resolved]
  - Mean platelet volume decreased [Not Recovered/Not Resolved]
  - Anion gap increased [Recovered/Resolved]
  - Activated partial thromboplastin time prolonged [Recovered/Resolved]
  - Analgesic drug level decreased [Unknown]
  - Aspartate aminotransferase increased [Not Recovered/Not Resolved]
  - Blood gases abnormal [Not Recovered/Not Resolved]
  - Blood thyroid stimulating hormone decreased [Unknown]
  - Fibrin D dimer increased [Not Recovered/Not Resolved]
  - International normalised ratio increased [Not Recovered/Not Resolved]
  - Mean cell haemoglobin [Unknown]
  - Mean cell haemoglobin concentration [Unknown]
  - Prothrombin time prolonged [Recovered/Resolved]
  - Haematocrit decreased [Not Recovered/Not Resolved]
  - Blood cholesterol increased [Not Recovered/Not Resolved]
  - Monocyte count increased [Not Recovered/Not Resolved]
  - Haemoglobin decreased [Recovered/Resolved]
  - Basophil count increased [Not Recovered/Not Resolved]
  - Lymphocyte count decreased [Recovered/Resolved]
  - Lymphocyte count increased [Unknown]
  - Eosinophil count increased [Not Recovered/Not Resolved]
  - Antipsychotic drug level below therapeutic [Unknown]
  - Confusional state [Unknown]
